FAERS Safety Report 14282715 (Version 1)
Quarter: 2017Q4

REPORT INFORMATION
  Report Type: Spontaneous
  Country: US (occurrence: US)
  Receive Date: 20171213
  Receipt Date: 20171213
  Transmission Date: 20180321
  Serious: Yes (Other)
  Sender: FDA-Public Use
  Company Number: US-ALLERGAN-1769941US

PATIENT
  Age: 10 Year
  Weight: 47.62 kg

DRUGS (2)
  1. LINZESS [Suspect]
     Active Substance: LINACLOTIDE
     Dosage: 72 ?G, QID
     Route: 065
  2. LINZESS [Suspect]
     Active Substance: LINACLOTIDE
     Indication: CONSTIPATION
     Dosage: 72 ?G, BID
     Route: 065

REACTIONS (5)
  - Dysphagia [Unknown]
  - Bowel movement irregularity [Unknown]
  - Gastrointestinal tube insertion [Unknown]
  - Off label use [Unknown]
  - Drug ineffective [Unknown]
